FAERS Safety Report 25326492 (Version 1)
Quarter: 2025Q2

REPORT INFORMATION
  Report Type: Report from Study
  Country: CO (occurrence: CO)
  Receive Date: 20250516
  Receipt Date: 20250516
  Transmission Date: 20250716
  Serious: Yes (Hospitalization)
  Sender: EISAI
  Company Number: CO-Eisai-EC-2025-189416

PATIENT
  Age: 73 Year
  Sex: Male
  Weight: 92.00 kg

DRUGS (3)
  1. LENVIMA [Suspect]
     Active Substance: LENVATINIB
     Indication: Thyroid cancer
     Dates: start: 20240711, end: 20240930
  2. LENVIMA [Suspect]
     Active Substance: LENVATINIB
     Dates: start: 20241010, end: 202501
  3. LENVIMA [Suspect]
     Active Substance: LENVATINIB
     Dates: start: 20250106

REACTIONS (2)
  - Wound complication [Unknown]
  - Skin ulcer [Not Recovered/Not Resolved]

NARRATIVE: CASE EVENT DATE: 20250101
